FAERS Safety Report 5748722-4 (Version None)
Quarter: 2008Q2

REPORT INFORMATION
  Report Type: 
  Country: None (occurrence: None)
  Receive Date: 20080521
  Receipt Date: 20080506
  Transmission Date: 20081010
  Serious: Yes (Other)
  Sender: FDA-Public Use
  Company Number: S08-GRC-01798-01

PATIENT
  Age: 31 Year
  Sex: Female
  Weight: 62 kg

DRUGS (2)
  1. CITALOPRAM HYDROBROMIDE [Suspect]
     Dosage: 20 MG QD PO
     Route: 048
     Dates: start: 20080325, end: 20080408
  2. SOLIAN (AMISULPRIDE) [Suspect]
     Dosage: 200 MG QD PO
     Route: 048
     Dates: start: 20080331, end: 20080406

REACTIONS (2)
  - CHEST PAIN [None]
  - DYSTONIA [None]
